FAERS Safety Report 9155460 (Version 6)
Quarter: 2014Q1

REPORT INFORMATION
  Report Type: Report from Study
  Country: FR (occurrence: FR)
  Receive Date: 20130311
  Receipt Date: 20140310
  Transmission Date: 20141002
  Serious: Yes (Hospitalization)
  Sender: FDA-Public Use
  Company Number: FR-ROCHE-1184915

PATIENT
  Age: 59 Year
  Sex: Female
  Weight: 32 kg

DRUGS (17)
  1. VISMODEGIB [Suspect]
     Indication: HEAD AND NECK CANCER
     Dosage: LAST DOSE PRIOR TO CHRONIC OBSTRUCTIVE PULMONARY DISEASE EXACERBATION: 23/JAN/2013.
     Route: 048
     Dates: start: 20120903, end: 20140124
  2. VISMODEGIB [Suspect]
     Dosage: LAST DOSE PRIOR TO ASPIRATION PNEUMONIA (PNEUMONITIS): 03/APR/2013.
     Route: 048
     Dates: start: 20140125
  3. SKENAN [Concomitant]
     Indication: PAIN
     Route: 065
     Dates: start: 200908
  4. LYRICA [Concomitant]
     Indication: PAIN
     Route: 065
     Dates: start: 201207
  5. CIFLOX (FRANCE) [Concomitant]
     Indication: EYE INFECTION
     Route: 065
     Dates: start: 201206, end: 20121003
  6. VENTOLINE [Concomitant]
     Indication: ASTHMA
     Route: 065
     Dates: start: 20130121
  7. ACTISKENAN [Concomitant]
     Indication: PAIN
     Route: 065
     Dates: start: 20121031
  8. PARACETAMOL [Concomitant]
     Indication: PAIN
     Route: 065
     Dates: start: 200901
  9. MUCOMYST [Concomitant]
     Indication: BRONCHITIS
     Route: 065
     Dates: start: 20121126
  10. SYMBICORT [Concomitant]
     Indication: CHRONIC OBSTRUCTIVE PULMONARY DISEASE
     Dosage: TOTAL DAILY DOSE: 400/12 MCG DAILY.
     Route: 065
     Dates: start: 20130121
  11. SERETIDE [Concomitant]
     Indication: CHRONIC OBSTRUCTIVE PULMONARY DISEASE
     Route: 055
     Dates: start: 20130318
  12. TIOTROPIUM BROMIDE [Concomitant]
     Indication: CHRONIC OBSTRUCTIVE PULMONARY DISEASE
     Route: 065
     Dates: start: 20130318
  13. SALBUTAMOL [Concomitant]
     Indication: CHRONIC OBSTRUCTIVE PULMONARY DISEASE
     Route: 065
     Dates: start: 20130318
  14. NICOTINE [Concomitant]
     Indication: TOBACCO WITHDRAWAL SYMPTOMS
     Route: 065
     Dates: start: 20130409
  15. DEXERYL (FRANCE) [Concomitant]
     Indication: DRY SKIN
     Dosage: 1 APP/DAY
     Route: 065
     Dates: start: 20130218
  16. ACYCLOVIR [Concomitant]
     Indication: HERPES ZOSTER
     Route: 065
     Dates: start: 20130603, end: 20130606
  17. VALACYCLOVIR [Concomitant]
     Indication: HERPES ZOSTER
     Route: 065
     Dates: start: 20130607, end: 20130610

REACTIONS (3)
  - Chronic obstructive pulmonary disease [Not Recovered/Not Resolved]
  - Pneumonia aspiration [Recovered/Resolved]
  - Pneumonitis [Recovered/Resolved]
